FAERS Safety Report 14682048 (Version 2)
Quarter: 2018Q3

REPORT INFORMATION
  Report Type: Spontaneous
  Country: US (occurrence: US)
  Receive Date: 20180326
  Receipt Date: 20180926
  Transmission Date: 20181010
  Serious: No
  Sender: FDA-Public Use
  Company Number: US-PFIZER INC-2018124152

PATIENT
  Age: 70 Year
  Sex: Male
  Weight: 155 kg

DRUGS (1)
  1. XELJANZ [Suspect]
     Active Substance: TOFACITINIB CITRATE
     Indication: RHEUMATOID ARTHRITIS
     Dosage: 5 MG, 1X/DAY (X60)
     Route: 048
     Dates: start: 201701

REACTIONS (2)
  - Body height decreased [Unknown]
  - Pain [Unknown]

NARRATIVE: CASE EVENT DATE: 20180903
